FAERS Safety Report 9093006 (Version 1)
Quarter: 2013Q1

REPORT INFORMATION
  Report Type: Spontaneous
  Country: US (occurrence: None)
  Receive Date: 20130213
  Receipt Date: 20130213
  Transmission Date: 20140127
  Serious: No
  Sender: FDA-Public Use
  Company Number: None

PATIENT
  Age: 66 Year
  Sex: Male
  Weight: 86.18 kg

DRUGS (6)
  1. AZOR [Suspect]
  2. DOXAZOSIN MESYLATE [Concomitant]
  3. TEKTURNA HCT [Concomitant]
  4. NEXIUM [Concomitant]
  5. PRAVASTATIN SODIUM [Concomitant]
  6. ASPIRIN [Concomitant]

REACTIONS (3)
  - Local swelling [None]
  - Oedema peripheral [None]
  - Angioedema [None]
